FAERS Safety Report 9818128 (Version 1)
Quarter: 2013Q4

REPORT INFORMATION
  Report Type: Spontaneous
  Country: US (occurrence: None)
  Receive Date: 20131223
  Receipt Date: 20131223
  Transmission Date: 20140711
  Serious: No
  Sender: FDA-Public Use
  Company Number: 219955

PATIENT
  Age: 74 Year
  Sex: Male

DRUGS (6)
  1. PICATO [Suspect]
     Indication: ACTINIC KERATOSIS
     Dates: start: 20121211, end: 20121213
  2. GABAPENTIN (GABAPENTIN) [Concomitant]
  3. PRAVSTATIN (PRAVASTATIN) 40MG [Concomitant]
  4. OMEPRAZOL (OMEPRAZOL) [Concomitant]
  5. WARFARIN (WARFARIN) (5MG) [Concomitant]
  6. METOPROLOL (METOPROLOL) (25MG) [Concomitant]

REACTIONS (1)
  - Eye pain [None]
